FAERS Safety Report 12394528 (Version 1)
Quarter: 2016Q2

REPORT INFORMATION
  Report Type: Spontaneous
  Country: CH (occurrence: CH)
  Receive Date: 20160523
  Receipt Date: 20160523
  Transmission Date: 20160815
  Serious: Yes (Life-Threatening, Hospitalization)
  Sender: FDA-Public Use
  Company Number: CH-TEVA-659652ISR

PATIENT
  Age: 38 Year
  Sex: Male

DRUGS (5)
  1. PURINETHOL [Concomitant]
     Active Substance: MERCAPTOPURINE
     Indication: ACUTE LYMPHOCYTIC LEUKAEMIA
     Dosage: 150 MILLIGRAM DAILY; UNSPECIFIED STRENGTH
     Route: 048
     Dates: start: 20160322, end: 20160325
  2. PURINETHOL [Concomitant]
     Active Substance: MERCAPTOPURINE
     Dosage: 150 MILLIGRAM DAILY; UNSPECIFIED STRENGTH
     Route: 048
     Dates: start: 20160326, end: 20160328
  3. METHOTREXATE (METHOTREXATE SODIUM) [Suspect]
     Active Substance: METHOTREXATE SODIUM
     Indication: ACUTE LYMPHOCYTIC LEUKAEMIA
     Route: 041
     Dates: start: 20160323, end: 20160424
  4. LEUCOVORIN. [Concomitant]
     Active Substance: LEUCOVORIN
     Indication: ACUTE LYMPHOCYTIC LEUKAEMIA
     Dosage: 180 MILLIGRAM DAILY; UNSPECIFIED STRENGTH
     Route: 048
     Dates: start: 20160326
  5. VINCRISTIN-TEVA [Concomitant]
     Indication: ACUTE LYMPHOCYTIC LEUKAEMIA
     Dosage: 2 MILLIGRAM DAILY; STRENGTH 2MG, AMPULES
     Route: 040
     Dates: start: 20160322, end: 20160322

REACTIONS (5)
  - Acute kidney injury [Recovered/Resolved]
  - Thrombocytopenia [Recovered/Resolved]
  - Neutropenic colitis [Recovered/Resolved]
  - Agranulocytosis [Recovered/Resolved]
  - Rectal haemorrhage [Recovered/Resolved]

NARRATIVE: CASE EVENT DATE: 20160325
